FAERS Safety Report 22530201 (Version 3)
Quarter: 2023Q2

REPORT INFORMATION
  Report Type: Spontaneous
  Country: AU (occurrence: AU)
  Receive Date: 20230607
  Receipt Date: 20230615
  Transmission Date: 20230722
  Serious: Yes (Other)
  Sender: FDA-Public Use
  Company Number: AU-MLMSERVICE-20230526-4307719-1

PATIENT
  Sex: Male
  Weight: 54.5 kg

DRUGS (7)
  1. BLEOMYCIN SULFATE [Suspect]
     Active Substance: BLEOMYCIN SULFATE
     Indication: Hodgkin^s disease
     Dosage: DAY 8, MOPP/ABV
     Dates: start: 1996
  2. DOXORUBICIN HYDROCHLORIDE [Suspect]
     Active Substance: DOXORUBICIN HYDROCHLORIDE
     Indication: Hodgkin^s disease
     Dosage: DAY 8, MOPP/ABV
     Dates: start: 1996
  3. VINCRISTINE SULFATE [Suspect]
     Active Substance: VINCRISTINE SULFATE
     Indication: Hodgkin^s disease
     Dosage: MONTHLY, MOPP/ABV
     Route: 042
     Dates: start: 1996
  4. VINBLASTINE [Suspect]
     Active Substance: VINBLASTINE
     Indication: Hodgkin^s disease
     Dosage: DAY 8, MOPP/ABV
     Route: 042
     Dates: start: 1996
  5. NITROGEN MUSTARD [Suspect]
     Active Substance: MECHLORETHAMINE OXIDE HYDROCHLORIDE
     Indication: Hodgkin^s disease
     Dosage: MONTHLY, MOPP/ABV
     Route: 042
     Dates: start: 1996
  6. PREDNISOLONE [Suspect]
     Active Substance: PREDNISOLONE
     Indication: Hodgkin^s disease
     Dosage: 35 MG ORAL, DAYS 1-14 MONTHLY, MOPP/ABV
     Route: 048
     Dates: start: 1996
  7. PROCARBAZINE [Suspect]
     Active Substance: PROCARBAZINE
     Indication: Hodgkin^s disease
     Dosage: 175 MG, DAYS 1-7, MOPP/ABV
     Route: 048
     Dates: start: 1996

REACTIONS (2)
  - Blood follicle stimulating hormone increased [Not Recovered/Not Resolved]
  - Azoospermia [Not Recovered/Not Resolved]
